FAERS Safety Report 17073170 (Version 2)
Quarter: 2019Q4

REPORT INFORMATION
  Report Type: Report from Study
  Country: None (occurrence: US)
  Receive Date: 20191125
  Receipt Date: 20191218
  Transmission Date: 20200122
  Serious: Yes (Other)
  Sender: FDA-Public Use
  Company Number: US-ABBVIE-19K-163-3013523-00

PATIENT
  Sex: Female

DRUGS (1)
  1. HUMIRA [Suspect]
     Active Substance: ADALIMUMAB
     Indication: RHEUMATOID ARTHRITIS
     Route: 058
     Dates: start: 201901

REACTIONS (6)
  - Alopecia [Unknown]
  - Acrochordon [Unknown]
  - Fall [Unknown]
  - Melanocytic naevus [Unknown]
  - Rash macular [Unknown]
  - Contusion [Unknown]

NARRATIVE: CASE EVENT DATE: 2019
